FAERS Safety Report 19894812 (Version 1)
Quarter: 2021Q3

REPORT INFORMATION
  Report Type: Report from Study
  Country: None (occurrence: NL)
  Receive Date: 20210928
  Receipt Date: 20210928
  Transmission Date: 20211014
  Serious: Yes (Hospitalization)
  Sender: FDA-Public Use
  Company Number: NL-ABBVIE-21K-114-4095062-00

PATIENT
  Sex: Female

DRUGS (2)
  1. DUODOPA [Suspect]
     Active Substance: CARBIDOPA\LEVODOPA
     Indication: PARKINSON^S DISEASE
     Route: 050
     Dates: start: 20140127
  2. DUODOPA [Suspect]
     Active Substance: CARBIDOPA\LEVODOPA
     Dosage: MD 7.5 ML, CD 2.8 ML/HR, ED 1.5 ML
     Route: 050

REACTIONS (13)
  - Dyskinesia [Unknown]
  - Bradykinesia [Unknown]
  - Intervertebral discitis [Not Recovered/Not Resolved]
  - General physical health deterioration [Unknown]
  - Sleep disorder [Unknown]
  - Hallucination [Unknown]
  - On and off phenomenon [Unknown]
  - Wheelchair user [Unknown]
  - Hypoaesthesia [Not Recovered/Not Resolved]
  - Dystonia [Unknown]
  - Muscle rigidity [Unknown]
  - Administration site inflammation [Recovered/Resolved]
  - Walking aid user [Unknown]
